FAERS Safety Report 25622504 (Version 2)
Quarter: 2025Q3

REPORT INFORMATION
  Report Type: Spontaneous
  Country: EU (occurrence: EU)
  Receive Date: 20250730
  Receipt Date: 20250731
  Transmission Date: 20251021
  Serious: Yes (Other)
  Sender: PFIZER
  Company Number: EU-MLMSERVICE-20250717-PI583230-00218-1

PATIENT
  Age: 13 Year
  Sex: Female

DRUGS (1)
  1. METHOTREXATE SODIUM [Suspect]
     Active Substance: METHOTREXATE SODIUM
     Indication: Acute lymphocytic leukaemia

REACTIONS (2)
  - Gastrointestinal inflammation [Unknown]
  - Stomatitis [Unknown]
